FAERS Safety Report 25422843 (Version 1)
Quarter: 2025Q2

REPORT INFORMATION
  Report Type: Spontaneous
  Country: US (occurrence: None)
  Receive Date: 20250611
  Receipt Date: 20250611
  Transmission Date: 20250717
  Serious: Yes (unspecified)
  Sender: FDA-CTU
  Company Number: None

PATIENT
  Age: 35 Year
  Sex: Female
  Weight: 102 kg

DRUGS (1)
  1. FERUMOXYTOL [Suspect]
     Active Substance: FERUMOXYTOL
     Indication: Anaemia
     Route: 042
     Dates: start: 20250515, end: 20250515

REACTIONS (8)
  - Arthralgia [None]
  - Myalgia [None]
  - Vomiting [None]
  - Infusion related reaction [None]
  - Nausea [None]
  - Back pain [None]
  - Arthralgia [None]
  - Lethargy [None]

NARRATIVE: CASE EVENT DATE: 20250515
